FAERS Safety Report 6875855-1 (Version None)
Quarter: 2010Q3

REPORT INFORMATION
  Report Type: 
  Country: None (occurrence: None)
  Receive Date: 20100727
  Receipt Date: 20071203
  Transmission Date: 20110219
  Serious: Yes (Hospitalization, Other)
  Sender: FDA-Public Use
  Company Number: US-PFIZER INC-2006150159

PATIENT
  Sex: Female
  Weight: 115.7 kg

DRUGS (3)
  1. CELEBREX [Suspect]
     Indication: ARTHRITIS
     Route: 048
     Dates: start: 20011101
  2. VIOXX [Suspect]
     Indication: OSTEOARTHRITIS
     Dosage: 2 TO 3 TIMES AS NEEDED
     Route: 048
     Dates: start: 19991101
  3. VIOXX [Suspect]
     Indication: RHEUMATOID ARTHRITIS

REACTIONS (3)
  - CEREBROVASCULAR ACCIDENT [None]
  - DEEP VEIN THROMBOSIS [None]
  - TRANSIENT ISCHAEMIC ATTACK [None]
